FAERS Safety Report 11110545 (Version 2)
Quarter: 2016Q3

REPORT INFORMATION
  Report Type: Spontaneous
  Country: FR (occurrence: FR)
  Receive Date: 20150513
  Receipt Date: 20160707
  Transmission Date: 20161109
  Serious: Yes (Hospitalization)
  Sender: FDA-Public Use
  Company Number: FR-TEVA-561621ISR

PATIENT
  Age: 50 Year
  Sex: Female

DRUGS (2)
  1. ALPRAZOLAM. [Interacting]
     Active Substance: ALPRAZOLAM
     Indication: INTENTIONAL OVERDOSE
     Dosage: 15MG
     Route: 048
  2. TRAMADOL. [Suspect]
     Active Substance: TRAMADOL
     Indication: INTENTIONAL OVERDOSE
     Dosage: 18GR
     Route: 048

REACTIONS (8)
  - Respiratory arrest [Recovering/Resolving]
  - Toxicity to various agents [Recovering/Resolving]
  - Epilepsy [Recovering/Resolving]
  - Cardiogenic shock [Recovering/Resolving]
  - Drug interaction [Recovering/Resolving]
  - Partial seizures [Recovering/Resolving]
  - Mydriasis [Recovering/Resolving]
  - Intentional overdose [Recovering/Resolving]
